FAERS Safety Report 4721487-0 (Version None)
Quarter: 2005Q3

REPORT INFORMATION
  Report Type: 
  Country: None (occurrence: None)
  Receive Date: 20050721
  Receipt Date: 20041011
  Transmission Date: 20060218
  Serious: Yes (Hospitalization)
  Sender: FDA-Public Use
  Company Number: US-BRISTOL-MYERS SQUIBB COMPANY-12728218

PATIENT
  Age: 48 Year
  Sex: Female
  Weight: 102 kg

DRUGS (12)
  1. COUMADIN [Suspect]
     Indication: DEEP VEIN THROMBOSIS
     Dosage: 17.5 MG FOR 4 DAYS/20 MG FOR 3 DAYS
     Route: 048
  2. COUMADIN [Suspect]
     Indication: PULMONARY EMBOLISM
     Dosage: 17.5 MG FOR 4 DAYS/20 MG FOR 3 DAYS
     Route: 048
  3. IMURAN [Concomitant]
  4. METHOTREXATE [Concomitant]
  5. PREDNISONE [Concomitant]
  6. LASIX [Concomitant]
  7. CARDIZEM CD [Concomitant]
  8. COZAAR [Concomitant]
  9. DETROL LA [Concomitant]
  10. K-DUR 10 [Concomitant]
  11. ALBUTEROL [Concomitant]
  12. ADVAIR DISKUS 100/50 [Concomitant]

REACTIONS (4)
  - CHEST PAIN [None]
  - CONTUSION [None]
  - DIZZINESS [None]
  - HOSPITALISATION [None]
